FAERS Safety Report 6779084-1 (Version None)
Quarter: 2010Q2

REPORT INFORMATION
  Report Type: 
  Country: None (occurrence: None)
  Receive Date: 20100618
  Receipt Date: 20100605
  Transmission Date: 20101027
  Serious: Yes (Hospitalization)
  Sender: FDA-Public Use
  Company Number: US-ELI_LILLY_AND_COMPANY-US201006001967

PATIENT
  Sex: Female

DRUGS (14)
  1. GEMCITABINE HYDROCHLORIDE [Suspect]
     Indication: PANCREATIC CARCINOMA
     Dosage: 1530 MG, UNK
     Dates: start: 20091027
  2. GEMCITABINE HYDROCHLORIDE [Suspect]
     Dosage: 918 MG, UNK
     Dates: end: 20100506
  3. PACLITAXEL [Suspect]
     Indication: PANCREATIC CARCINOMA
     Dosage: 191 MG, UNK
     Dates: start: 20091027, end: 20100506
  4. PROMETHAZINE [Concomitant]
     Indication: NAUSEA
     Dosage: 25 MG, EVERY 6 HRS
     Route: 048
     Dates: start: 20090501
  5. REGLAN [Concomitant]
     Indication: IMPAIRED GASTRIC EMPTYING
     Dosage: 10 MG, EVERY 6 HRS
     Route: 048
     Dates: start: 20091001
  6. OXYCONTIN [Concomitant]
     Indication: ABDOMINAL PAIN UPPER
     Dosage: 30 MG, EVERY 8 HRS
     Route: 048
     Dates: start: 20091022
  7. OXYCODONE [Concomitant]
     Indication: ABDOMINAL PAIN UPPER
     Dosage: 15 MG, EVERY 4 HRS
     Route: 048
     Dates: start: 20091022
  8. ONDANSETRON [Concomitant]
     Indication: NAUSEA
     Dosage: 8 MG, EVERY 8 HRS
     Route: 048
     Dates: start: 20091022
  9. PANCREASE MT [Concomitant]
     Indication: IMPAIRED GASTRIC EMPTYING
     Dosage: UNK, AS NEEDED
     Route: 048
     Dates: start: 20091022
  10. MIRALAX [Concomitant]
     Indication: CONSTIPATION
     Route: 048
     Dates: start: 20091022
  11. SENNA [Concomitant]
     Indication: CONSTIPATION
     Dosage: 2 D/F, 2/D
     Route: 048
     Dates: start: 20091022
  12. DOCUSATE [Concomitant]
     Indication: CONSTIPATION
     Dosage: 200 MG, UNK
     Route: 048
     Dates: start: 20091022
  13. EMLA [Concomitant]
     Indication: PROPHYLAXIS
     Route: 061
     Dates: start: 20091022
  14. OMEPRAZOLE [Concomitant]
     Indication: GASTRITIS
     Dosage: 40 MG, UNK
     Dates: start: 20100104

REACTIONS (1)
  - SMALL INTESTINAL OBSTRUCTION [None]
